FAERS Safety Report 9281023 (Version 1)
Quarter: 2013Q2

REPORT INFORMATION
  Report Type: Spontaneous
  Country: US (occurrence: US)
  Receive Date: 20130509
  Receipt Date: 20130509
  Transmission Date: 20140414
  Serious: Yes (Death)
  Sender: FDA-Public Use
  Company Number: US-GLAXOSMITHKLINE-A1022837A

PATIENT
  Age: 77 Year
  Sex: Male

DRUGS (8)
  1. VOTRIENT [Suspect]
     Indication: PANCREATIC CARCINOMA
     Dosage: 200MG PER DAY
     Route: 048
     Dates: start: 20121005, end: 20130124
  2. FLOMAX [Concomitant]
  3. DILANTIN [Concomitant]
  4. PROTONIX [Concomitant]
  5. DEXAMETHASONE [Concomitant]
  6. AVODART [Concomitant]
  7. VITAMIN D [Concomitant]
  8. TARCEVA [Concomitant]

REACTIONS (1)
  - Death [Fatal]
